FAERS Safety Report 7180372-8 (Version None)
Quarter: 2010Q4

REPORT INFORMATION
  Report Type: 
  Country: None (occurrence: None)
  Receive Date: 20101221
  Receipt Date: 20101213
  Transmission Date: 20110411
  Serious: Yes (Death, Hospitalization, Congenital Anomaly)
  Sender: FDA-Public Use
  Company Number: A0900654A

PATIENT
  Sex: Female
  Weight: 2.2 kg

DRUGS (4)
  1. PAROXETINE HYDROCHLORIDE [Suspect]
     Dates: start: 20030101
  2. PAXIL [Suspect]
     Dates: end: 20030101
  3. RISPERDAL [Concomitant]
  4. PRENATAL VITAMINS [Concomitant]

REACTIONS (15)
  - ANOMALOUS PULMONARY VENOUS CONNECTION [None]
  - ATRIOVENTRICULAR BLOCK COMPLETE [None]
  - BRONCHOPULMONARY DYSPLASIA [None]
  - CONGENITAL PULMONARY VALVE DISORDER [None]
  - CONGESTIVE CARDIOMYOPATHY [None]
  - DEATH [None]
  - DRUG EXPOSURE DURING PREGNANCY [None]
  - HEART DISEASE CONGENITAL [None]
  - HETEROTAXIA [None]
  - PATENT DUCTUS ARTERIOSUS [None]
  - PULMONARY HYPERTENSION [None]
  - PULMONARY OEDEMA [None]
  - RIGHT VENTRICLE OUTFLOW TRACT OBSTRUCTION [None]
  - VENA CAVA INJURY [None]
  - VENTRICULAR HYPERTROPHY [None]
